FAERS Safety Report 12732205 (Version 2)
Quarter: 2016Q4

REPORT INFORMATION
  Report Type: Spontaneous
  Country: AT (occurrence: AT)
  Receive Date: 20160912
  Receipt Date: 20161012
  Transmission Date: 20170207
  Serious: Yes (Other)
  Sender: FDA-Public Use
  Company Number: PHHY2014AT037019

PATIENT
  Sex: Male

DRUGS (2)
  1. LAMICTAL [Concomitant]
     Active Substance: LAMOTRIGINE
     Indication: EPILEPSY
     Dosage: 50 MG, BID
     Route: 048
     Dates: start: 20040619
  2. GILENYA [Suspect]
     Active Substance: FINGOLIMOD HYDROCHLORIDE
     Indication: MULTIPLE SCLEROSIS RELAPSE
     Dosage: 0.5 MG, QD
     Route: 048
     Dates: start: 20130708, end: 20131213

REACTIONS (5)
  - Blood cholesterol increased [Unknown]
  - Blood triglycerides increased [Unknown]
  - Liver function test increased [Recovering/Resolving]
  - Gallbladder disorder [Not Recovered/Not Resolved]
  - Hepatobiliary disease [Not Recovered/Not Resolved]

NARRATIVE: CASE EVENT DATE: 20130807
